FAERS Safety Report 16140547 (Version 1)
Quarter: 2019Q2

REPORT INFORMATION
  Report Type: Spontaneous
  Country: HU (occurrence: HU)
  Receive Date: 20190401
  Receipt Date: 20190401
  Transmission Date: 20190711
  Serious: Yes (Death, Life-Threatening, Hospitalization, Other)
  Sender: FDA-Public Use
  Company Number: HU-MACLEODS PHARMACEUTICALS US LTD-MAC2019020679

PATIENT

DRUGS (1)
  1. VENLAFAXINE [Suspect]
     Active Substance: VENLAFAXINE HYDROCHLORIDE
     Indication: DEPRESSION
     Route: 065

REACTIONS (9)
  - Brain herniation [Fatal]
  - Renal failure [Unknown]
  - Circulatory collapse [Fatal]
  - Respiratory arrest [Fatal]
  - Brain oedema [Fatal]
  - Hypertensive crisis [Unknown]
  - Azotaemia [Unknown]
  - Depressed level of consciousness [Not Recovered/Not Resolved]
  - Inappropriate antidiuretic hormone secretion [Unknown]
